FAERS Safety Report 20620022 (Version 5)
Quarter: 2022Q4

REPORT INFORMATION
  Report Type: Report from Study
  Country: US (occurrence: None)
  Receive Date: 20220322
  Receipt Date: 20221209
  Transmission Date: 20230112
  Serious: Yes (Hospitalization, Other)
  Sender: FDA-Public Use
  Company Number: US-ROCHE-3047300

PATIENT
  Age: 82 Year
  Sex: Female
  Weight: 90.72 kg

DRUGS (2)
  1. OBINUTUZUMAB [Suspect]
     Active Substance: OBINUTUZUMAB
     Indication: Chronic lymphocytic leukaemia
     Dosage: DATE OF LAST ADMINISTRATION ON 15/OCT/2019
     Route: 042
     Dates: start: 20191001, end: 20191125
  2. IBRUTINIB [Suspect]
     Active Substance: IBRUTINIB
     Indication: Chronic lymphocytic leukaemia
     Dosage: DATE OF LAST ADMINISTRATION ON 12/JAN/2022, 19/MAR/2022, 16/JUL/2022, 19/AUG/2022, TOTAL DOSE RECEIV
     Route: 048
     Dates: start: 20191001

REACTIONS (29)
  - COVID-19 [Unknown]
  - Chronic kidney disease [Recovered/Resolved]
  - Hyponatraemia [Recovered/Resolved]
  - Hypoxia [Recovered/Resolved]
  - Pneumonia [Recovered/Resolved]
  - Leukocytosis [Recovered/Resolved]
  - Pulmonary oedema [Unknown]
  - Blood potassium decreased [Recovering/Resolving]
  - Cholecystitis [Recovered/Resolved]
  - Sepsis [Recovered/Resolved]
  - Atrial fibrillation [Recovering/Resolving]
  - Confusional state [Recovered/Resolved]
  - Dehydration [Recovered/Resolved]
  - Diarrhoea [Recovered/Resolved]
  - Enterocolitis infectious [Recovered/Resolved]
  - Headache [Recovered/Resolved]
  - Headache [Recovered/Resolved]
  - Hypertension [Recovered/Resolved]
  - Hypertension [Recovered/Resolved]
  - Hypokalaemia [Unknown]
  - Hypomagnesaemia [Recovered/Resolved]
  - Haemorrhage intracranial [Unknown]
  - Haemorrhage intracranial [Unknown]
  - Lethargy [Recovered/Resolved]
  - Nausea [Recovered/Resolved]
  - Vomiting [Recovered/Resolved]
  - Hypotension [Recovered/Resolved]
  - Respiratory failure [Recovered/Resolved]
  - Acute kidney injury [Recovered/Resolved]

NARRATIVE: CASE EVENT DATE: 20220112
